FAERS Safety Report 5241064-5 (Version None)
Quarter: 2007Q1

REPORT INFORMATION
  Report Type: 
  Country: None (occurrence: None)
  Receive Date: 20070214
  Receipt Date: 20070214
  Transmission Date: 20070707
  Serious: Yes (Hospitalization, Other)
  Sender: FDA-Public Use
  Company Number: None

PATIENT
  Age: 65 Year
  Sex: Female
  Weight: 83.5 kg

DRUGS (16)
  1. LISINOPRIL [Suspect]
     Indication: HYPERTENSION
     Dosage: 10 MG PO DAILY
     Route: 048
     Dates: start: 20061120, end: 20061201
  2. ANASTROZOLE [Concomitant]
  3. ALENDRONATE SODIUM [Concomitant]
  4. CITALOPRAM [Concomitant]
  5. QUETIAPINE FUMARATE [Concomitant]
  6. OMEPRAZOLE [Concomitant]
  7. THEOPHYLLINE [Concomitant]
  8. CALCIUM/VIT D [Concomitant]
  9. CHROMOLYN [Concomitant]
  10. CONJ ESTROGENS VAGINAL CREAM [Concomitant]
  11. FLUNISOLIDE + NASAL INHALER [Concomitant]
  12. FORMOTEROL FUMARATE [Concomitant]
  13. GABAPENTIN [Concomitant]
  14. LEVALBUTEROL HCL [Concomitant]
  15. MVI WITH MINERALS [Concomitant]
  16. SIMETHICONE [Concomitant]

REACTIONS (2)
  - DIALYSIS [None]
  - RENAL FAILURE [None]
